FAERS Safety Report 6237016-9 (Version None)
Quarter: 2009Q2

REPORT INFORMATION
  Report Type: 
  Country: None (occurrence: None)
  Receive Date: 20090619
  Receipt Date: 20090325
  Transmission Date: 20091009
  Serious: No
  Sender: FDA-Public Use
  Company Number: US-ASTRAZENECA-2009UW07627

PATIENT
  Age: 73 Year
  Sex: Female
  Weight: 93 kg

DRUGS (3)
  1. SYMBICORT [Suspect]
     Route: 055
     Dates: start: 20081101
  2. SPIRIVA [Concomitant]
  3. DIFLUCAN [Concomitant]

REACTIONS (1)
  - OESOPHAGEAL CANDIDIASIS [None]
